FAERS Safety Report 6198350-4 (Version None)
Quarter: 2009Q2

REPORT INFORMATION
  Report Type: 
  Country: None (occurrence: None)
  Receive Date: 20090521
  Receipt Date: 20090513
  Transmission Date: 20091009
  Serious: Yes (Death)
  Sender: FDA-Public Use
  Company Number: BR-AVENTIS-200915064GDDC

PATIENT
  Sex: Male

DRUGS (2)
  1. LANTUS [Suspect]
     Route: 058
  2. AUTOPEN INSULIN INJECTION PEN [Suspect]

REACTIONS (1)
  - LUNG NEOPLASM MALIGNANT [None]
